FAERS Safety Report 13843944 (Version 1)
Quarter: 2017Q3

REPORT INFORMATION
  Report Type: Spontaneous
  Country: FR (occurrence: FR)
  Receive Date: 20170808
  Receipt Date: 20170808
  Transmission Date: 20171127
  Serious: Yes (Life-Threatening)
  Sender: FDA-Public Use
  Company Number: FR-TEVA-795010ROM

PATIENT
  Age: 55 Year
  Sex: Female

DRUGS (19)
  1. ERYTHROCINE [Suspect]
     Active Substance: ERYTHROMYCIN
     Route: 042
     Dates: start: 20170502, end: 20170502
  2. PANTOPRAZOLE SODIUM. [Suspect]
     Active Substance: PANTOPRAZOLE SODIUM
     Indication: PROPHYLAXIS AGAINST GASTROINTESTINAL ULCER
     Route: 042
     Dates: start: 20170423, end: 20170502
  3. PANTOPRAZOLE SODIUM. [Suspect]
     Active Substance: PANTOPRAZOLE SODIUM
     Route: 042
     Dates: start: 20170522, end: 20170526
  4. VANCOMYCINE MYLAN [Suspect]
     Active Substance: VANCOMYCIN
     Route: 042
     Dates: start: 20170523, end: 20170529
  5. CANCIDAS [Suspect]
     Active Substance: CASPOFUNGIN ACETATE
     Indication: SEPSIS
     Route: 042
     Dates: start: 20170505, end: 20170507
  6. CEFEPIME [Suspect]
     Active Substance: CEFEPIME HYDROCHLORIDE
     Route: 042
     Dates: start: 20170512, end: 20170519
  7. VANCOMYCINE MYLAN [Suspect]
     Active Substance: VANCOMYCIN
     Route: 042
     Dates: start: 20170512, end: 20170517
  8. CANCIDAS [Suspect]
     Active Substance: CASPOFUNGIN ACETATE
     Route: 042
     Dates: start: 20170527, end: 20170529
  9. PIPERACILLIN AND TAZOBACTAM [Suspect]
     Active Substance: PIPERACILLIN SODIUM\TAZOBACTAM SODIUM
     Indication: SEPSIS
     Route: 042
     Dates: start: 20170509, end: 20170512
  10. ERYTHROCINE [Suspect]
     Active Substance: ERYTHROMYCIN
     Route: 042
     Dates: start: 20170530, end: 20170602
  11. VANCOMYCINE MYLAN [Suspect]
     Active Substance: VANCOMYCIN
     Route: 042
     Dates: start: 20170505, end: 20170508
  12. PIPERACILLIN AND TAZOBACTAM [Suspect]
     Active Substance: PIPERACILLIN SODIUM\TAZOBACTAM SODIUM
     Route: 042
     Dates: start: 20170519, end: 20170523
  13. VANCOMYCINE MYLAN [Suspect]
     Active Substance: VANCOMYCIN
     Indication: SEPSIS
     Route: 042
     Dates: start: 20170423, end: 20170428
  14. ERYTHROCINE [Suspect]
     Active Substance: ERYTHROMYCIN
     Route: 042
     Dates: start: 20170522, end: 20170527
  15. CIPROFLOXACINE KABI [Suspect]
     Active Substance: CIPROFLOXACIN
     Indication: SEPSIS
     Route: 042
     Dates: start: 20170509, end: 20170530
  16. ERYTHROCINE [Suspect]
     Active Substance: ERYTHROMYCIN
     Indication: SEPSIS
     Route: 042
     Dates: start: 20170423, end: 20170427
  17. ERYTHROCINE [Suspect]
     Active Substance: ERYTHROMYCIN
     Route: 042
     Dates: start: 20170512, end: 20170517
  18. CANCIDAS [Suspect]
     Active Substance: CASPOFUNGIN ACETATE
     Route: 042
     Dates: start: 20170512, end: 20170517
  19. CEFEPIME [Suspect]
     Active Substance: CEFEPIME HYDROCHLORIDE
     Indication: SEPSIS
     Route: 042
     Dates: start: 20170505, end: 20170507

REACTIONS (1)
  - Drug reaction with eosinophilia and systemic symptoms [Unknown]

NARRATIVE: CASE EVENT DATE: 201706
